FAERS Safety Report 4376333-4 (Version None)
Quarter: 2004Q2

REPORT INFORMATION
  Report Type: 
  Country: None (occurrence: None)
  Receive Date: 20040603
  Receipt Date: 20031024
  Transmission Date: 20050107
  Serious: Yes (Death)
  Sender: FDA-Public Use
  Company Number: 200319256US

PATIENT
  Age: 68 Year
  Sex: Female
  Weight: 54.5 kg

DRUGS (2)
  1. LOVENOX [Suspect]
     Indication: ATRIAL FIBRILLATION
     Dosage: 160 MG SC
     Route: 058
  2. WARFARIN SODIUM [Concomitant]

REACTIONS (1)
  - INTRA-ABDOMINAL HAEMORRHAGE [None]
